FAERS Safety Report 24145072 (Version 2)
Quarter: 2024Q3

REPORT INFORMATION
  Report Type: Spontaneous
  Country: US (occurrence: US)
  Receive Date: 20240729
  Receipt Date: 20240920
  Transmission Date: 20241017
  Serious: Yes (Hospitalization)
  Sender: JOHNSON AND JOHNSON
  Company Number: US-JNJFOC-20240768877

PATIENT
  Age: 6 Year
  Sex: Female
  Weight: 16.4 kg

DRUGS (7)
  1. UPTRAVI [Suspect]
     Active Substance: SELEXIPAG
     Indication: Pulmonary arterial hypertension
     Dosage: THERAPY START DATE: 16/NOV/2023
     Route: 048
  2. UPTRAVI [Suspect]
     Active Substance: SELEXIPAG
     Route: 048
  3. AMBRISENTAN [Suspect]
     Active Substance: AMBRISENTAN
     Indication: Pulmonary arterial hypertension
     Dosage: THERAPY START DATE: 28/MAR/2024
     Route: 048
  4. AMBRISENTAN [Suspect]
     Active Substance: AMBRISENTAN
     Indication: Pulmonary hypertension
  5. ADDERALL [Suspect]
     Active Substance: AMPHETAMINE ASPARTATE\AMPHETAMINE SULFATE\DEXTROAMPHETAMINE SACCHARATE\DEXTROAMPHETAMINE SULFATE
     Indication: Product used for unknown indication
     Route: 065
  6. RIOCIGUAT [Concomitant]
     Active Substance: RIOCIGUAT
     Dates: start: 20231207
  7. CETIRIZINE [Concomitant]
     Active Substance: CETIRIZINE HYDROCHLORIDE

REACTIONS (10)
  - Pulmonary arterial hypertension [Not Recovered/Not Resolved]
  - Body temperature increased [Recovered/Resolved]
  - Presyncope [Recovered/Resolved]
  - Epistaxis [Recovered/Resolved]
  - Abnormal behaviour [Unknown]
  - Irritability [Unknown]
  - Personality change [Unknown]
  - Mood altered [Unknown]
  - Stubbornness [Unknown]
  - Off label use [Unknown]

NARRATIVE: CASE EVENT DATE: 20230920
